FAERS Safety Report 12621589 (Version 1)
Quarter: 2016Q3

REPORT INFORMATION
  Report Type: Spontaneous
  Country: US (occurrence: None)
  Receive Date: 20160803
  Receipt Date: 20160803
  Transmission Date: 20161109
  Serious: No
  Sender: FDA-Public Use
  Company Number: None

PATIENT
  Age: 70 Year
  Sex: Male
  Weight: 81.65 kg

DRUGS (5)
  1. CEPHALEXIN 500 MG AUROBINDO PHARM [Suspect]
     Active Substance: CEPHALEXIN
     Indication: POST PROCEDURAL INFECTION
     Dosage: 500 MG 40 EVERY 6 HRS MOUTH
     Route: 048
     Dates: start: 20160721, end: 20160724
  2. CEPHALEXIN 500 MG AUROBINDO PHARM [Suspect]
     Active Substance: CEPHALEXIN
     Indication: PROPHYLAXIS
     Dosage: 500 MG 40 EVERY 6 HRS MOUTH
     Route: 048
     Dates: start: 20160721, end: 20160724
  3. ASPIRIN. [Concomitant]
     Active Substance: ASPIRIN
  4. VITAMIN D [Concomitant]
     Active Substance: CHOLECALCIFEROL
  5. DIOVAN [Concomitant]
     Active Substance: VALSARTAN

REACTIONS (5)
  - Blister [None]
  - Eye pruritus [None]
  - Product substitution issue [None]
  - Lacrimation increased [None]
  - Malaise [None]

NARRATIVE: CASE EVENT DATE: 20160722
